FAERS Safety Report 18725689 (Version 2)
Quarter: 2021Q1

REPORT INFORMATION
  Report Type: Spontaneous
  Country: AT (occurrence: AT)
  Receive Date: 20210111
  Receipt Date: 20210120
  Transmission Date: 20210419
  Serious: Yes (Hospitalization, Other)
  Sender: FDA-Public Use
  Company Number: AT-ANIPHARMA-2021-AT-000001

PATIENT
  Age: 38 Year
  Sex: Male

DRUGS (4)
  1. CANDESARTAN CILEXETIL. [Suspect]
     Active Substance: CANDESARTAN CILEXETIL
     Indication: PRODUCT USED FOR UNKNOWN INDICATION
     Dosage: 16 MG UNK
     Route: 048
  2. RISPERDAL [Suspect]
     Active Substance: RISPERIDONE
     Dosage: 3 MG UNK / 4 MG UNK / 5 MG UNK / 6 MG UNK / 4.5 MG UNK
     Route: 065
     Dates: start: 20200608, end: 20200706
  3. QUILONORM [Suspect]
     Active Substance: LITHIUM
     Dosage: 225 MG UNK / 450 MG UNK / 675 MG UNK
     Route: 048
     Dates: start: 20200619, end: 20200706
  4. TEMESTA (LORAZEPAM) [Suspect]
     Active Substance: LORAZEPAM
     Dosage: 5 MG UNK / 3.75 MG UNK / 3.5 MG UNK / 3 MG UNK/ 2.5 MG UNK / 1.5 MG UNK
     Route: 048
     Dates: start: 20200608, end: 20200706

REACTIONS (2)
  - Galactorrhoea [Recovered/Resolved]
  - Hospitalisation [Unknown]

NARRATIVE: CASE EVENT DATE: 20200628
